FAERS Safety Report 9071026 (Version 1)
Quarter: 2013Q1

REPORT INFORMATION
  Report Type: Spontaneous
  Country: US (occurrence: US)
  Receive Date: 20130206
  Receipt Date: 20130206
  Transmission Date: 20140127
  Serious: No
  Sender: FDA-Public Use
  Company Number: US-ALLERGAN-1208000US

PATIENT
  Age: 87 Year
  Sex: Female

DRUGS (8)
  1. RESTASIS? [Suspect]
     Indication: DRY EYE
     Dosage: 2 GTT, BID
     Route: 047
     Dates: start: 20120413
  2. DILTIAZEM [Concomitant]
     Indication: CARDIAC DISORDER
     Dosage: 240 MG, UNK
  3. LIPITOR [Concomitant]
     Indication: CARDIAC DISORDER
     Dosage: 10 MG, UNK
  4. FUROSEMIDE [Concomitant]
     Indication: CARDIAC DISORDER
     Dosage: 20 MG, UNK
  5. DIOVAN                             /01319601/ [Concomitant]
     Indication: CARDIAC DISORDER
     Dosage: 80 MG, UNK
  6. WARFARIN [Concomitant]
     Indication: CARDIAC DISORDER
     Dosage: 2.5 MG, UNK
  7. DIGOXIN [Concomitant]
     Indication: CARDIAC DISORDER
     Dosage: .25 MG, UNK
  8. VITAMINS [Concomitant]
     Indication: PRODUCT USED FOR UNKNOWN INDICATION

REACTIONS (2)
  - Photophobia [Not Recovered/Not Resolved]
  - Eye irritation [Not Recovered/Not Resolved]
